FAERS Safety Report 9228181 (Version 1)
Quarter: 2013Q2

REPORT INFORMATION
  Report Type: Spontaneous
  Country: US (occurrence: None)
  Receive Date: 20130411
  Receipt Date: 20130411
  Transmission Date: 20140414
  Serious: Yes (Other)
  Sender: FDA-Public Use
  Company Number: None

PATIENT
  Age: 16 Year
  Sex: Male
  Weight: 53.52 kg

DRUGS (7)
  1. TASIGNA [Suspect]
     Dosage: 400MG BID PO
     Route: 048
     Dates: start: 201302
  2. ONDANSETRON [Concomitant]
  3. HYDROXYZINE [Concomitant]
  4. HYDROCODONE/APAP [Concomitant]
  5. ALLOPURINOL [Concomitant]
  6. HYDROXYUREA [Concomitant]
  7. PEG 3350 [Concomitant]

REACTIONS (1)
  - Rash generalised [None]
